FAERS Safety Report 7082926-6 (Version None)
Quarter: 2010Q4

REPORT INFORMATION
  Report Type: 
  Country: None (occurrence: None)
  Receive Date: 20101104
  Receipt Date: 20101027
  Transmission Date: 20110411
  Serious: Yes (Hospitalization, Other)
  Sender: FDA-Public Use
  Company Number: PHHY2010US68040

PATIENT
  Sex: Female

DRUGS (2)
  1. GILENYA [Suspect]
     Dosage: 0.5 MG DAILY
     Route: 048
     Dates: start: 20101004, end: 20101024
  2. GILENYA [Suspect]
     Dosage: 0.5 MG DAILY
     Route: 048
     Dates: start: 20101102

REACTIONS (4)
  - FALL [None]
  - HEART RATE IRREGULAR [None]
  - NAUSEA [None]
  - VIRAL INFECTION [None]
